FAERS Safety Report 7329153-2 (Version None)
Quarter: 2011Q1

REPORT INFORMATION
  Report Type: 
  Country: None (occurrence: None)
  Receive Date: 20110303
  Receipt Date: 20110302
  Transmission Date: 20110831
  Serious: Yes (Hospitalization)
  Sender: FDA-Public Use
  Company Number: A0647875A

PATIENT
  Age: 66 Year
  Sex: Female
  Weight: 59.7 kg

DRUGS (4)
  1. PACLITAXEL [Suspect]
     Dosage: 132MG CYCLIC
     Route: 042
     Dates: start: 20070312
  2. TRASTUZUMAB [Suspect]
     Dosage: 243.2MG WEEKLY
     Route: 042
     Dates: start: 20070312
  3. LAPATINIB [Suspect]
     Dosage: 750MG IN THE MORNING
     Route: 048
     Dates: start: 20070312
  4. CARBOPLATIN [Suspect]
     Dosage: 182MG CYCLIC
     Route: 042
     Dates: start: 20070312

REACTIONS (2)
  - VOMITING [None]
  - DIARRHOEA [None]
